FAERS Safety Report 14681498 (Version 1)
Quarter: 2018Q1

REPORT INFORMATION
  Report Type: Spontaneous
  Country: US (occurrence: US)
  Receive Date: 20180326
  Receipt Date: 20180326
  Transmission Date: 20180509
  Serious: Yes (Other)
  Sender: FDA-Public Use
  Company Number: US-ALLERGAN-1815482US

PATIENT
  Age: 54 Year
  Sex: Female

DRUGS (1)
  1. IRON DEXTRAN UNK [Suspect]
     Active Substance: IRON DEXTRAN
     Indication: IRON DEFICIENCY ANAEMIA
     Dosage: UNK, SINGLE
     Route: 042

REACTIONS (5)
  - Pharyngeal oedema [Unknown]
  - Pruritus [Unknown]
  - Angioedema [Unknown]
  - Dysphonia [Unknown]
  - Dyspnoea [Unknown]
